FAERS Safety Report 7163028-7 (Version None)
Quarter: 2010Q4

REPORT INFORMATION
  Report Type: 
  Country: None (occurrence: None)
  Receive Date: 20101210
  Receipt Date: 20101210
  Transmission Date: 20110411
  Serious: Yes (Other)
  Sender: FDA-Public Use
  Company Number: None

PATIENT
  Age: 38 Year
  Sex: Female
  Weight: 67.1324 kg

DRUGS (2)
  1. KLONOPIN [Suspect]
     Indication: ANXIETY
     Dosage: 1 OR 2 MG ONCE PER NIGHT PO
     Route: 048
  2. EFFEXOR XR [Suspect]
     Indication: DEPRESSION
     Dosage: 3 TIMES 75 MG ONCE IN MORNING PO
     Route: 048

REACTIONS (5)
  - CONDITION AGGRAVATED [None]
  - DEPRESSION [None]
  - PRODUCT COATING ISSUE [None]
  - PRODUCT MEASURED POTENCY ISSUE [None]
  - PRODUCT SUBSTITUTION ISSUE [None]
